FAERS Safety Report 4663582-0 (Version None)
Quarter: 2005Q2

REPORT INFORMATION
  Report Type: 
  Country: None (occurrence: None)
  Receive Date: 20050517
  Receipt Date: 20050422
  Transmission Date: 20051028
  Serious: Yes (Hospitalization)
  Sender: FDA-Public Use
  Company Number: US-AMGEN-US129074

PATIENT
  Sex: Female
  Weight: 94 kg

DRUGS (12)
  1. EPOGEN [Suspect]
     Indication: ANAEMIA
     Route: 058
     Dates: start: 20040704, end: 20050218
  2. RIBAVIRIN [Concomitant]
     Dates: end: 20041101
  3. INTERFERON ALFA [Concomitant]
     Dates: end: 20041101
  4. CELEXA [Concomitant]
  5. PROTONIX [Concomitant]
  6. CAMPHOR [Concomitant]
  7. CALCIUM CARBONATE [Concomitant]
  8. HYDROXYZINE [Concomitant]
  9. COLACE [Concomitant]
  10. SENNA [Concomitant]
  11. HYDROCHLOROTHIAZIDE [Concomitant]
  12. PERCOCET [Concomitant]

REACTIONS (9)
  - ANAEMIA [None]
  - ANTI-ERYTHROPOIETIN ANTIBODY [None]
  - APLASIA PURE RED CELL [None]
  - BLOOD CREATININE INCREASED [None]
  - MYELOPROLIFERATIVE DISORDER [None]
  - PARVOVIRUS B19 SEROLOGY POSITIVE [None]
  - PLATELET COUNT DECREASED [None]
  - PNEUMONIA [None]
  - SALMONELLA BACTERAEMIA [None]
